FAERS Safety Report 9452486 (Version 1)
Quarter: 2013Q3

REPORT INFORMATION
  Report Type: Spontaneous
  Country: US (occurrence: None)
  Receive Date: 20130808
  Receipt Date: 20130808
  Transmission Date: 20140515
  Serious: Yes (Other)
  Sender: FDA-Public Use
  Company Number: None

PATIENT
  Age: 23 Year
  Sex: Female
  Weight: 68.04 kg

DRUGS (1)
  1. ORTHO EVRA [Suspect]
     Indication: CONTRACEPTION
     Dosage: APPLIED AS MEDICATED PATCH TO SKIN
     Dates: start: 20130115, end: 20130509

REACTIONS (3)
  - Skin irritation [None]
  - Thermal burn [None]
  - Application site scar [None]
